FAERS Safety Report 5370291-1 (Version None)
Quarter: 2007Q2

REPORT INFORMATION
  Report Type: 
  Country: None (occurrence: None)
  Receive Date: 20070626
  Receipt Date: 20070620
  Transmission Date: 20071010
  Serious: Yes (Hospitalization)
  Sender: FDA-Public Use
  Company Number: US-AVENTIS-200715084GDDC

PATIENT
  Age: 55 Year
  Sex: Male
  Weight: 140 kg

DRUGS (4)
  1. TAXOTERE [Suspect]
     Indication: HYPOPHARYNGEAL CANCER
     Route: 042
     Dates: start: 20070529, end: 20070529
  2. HYDREA [Suspect]
     Indication: HYPOPHARYNGEAL CANCER
     Route: 048
     Dates: start: 20070528, end: 20070602
  3. FLUOROURACIL [Suspect]
     Indication: HYPOPHARYNGEAL CANCER
     Route: 042
     Dates: start: 20070528, end: 20070602
  4. RADIATION THERAPY [Suspect]
     Indication: HYPOPHARYNGEAL CANCER
     Dosage: DOSE: UNK

REACTIONS (1)
  - HYPOXIA [None]
